FAERS Safety Report 7845446-4 (Version None)
Quarter: 2011Q4

REPORT INFORMATION
  Report Type: 
  Country: None (occurrence: None)
  Receive Date: 20111025
  Receipt Date: 20111018
  Transmission Date: 20120403
  Serious: Yes (Hospitalization)
  Sender: FDA-Public Use
  Company Number: US-ABBOTT-11P-163-0866819-00

PATIENT
  Sex: Male
  Weight: 93.07 kg

DRUGS (7)
  1. LOPRESSOR [Concomitant]
     Indication: HYPERTENSION
  2. ASPIRIN [Suspect]
     Indication: CARDIAC DISORDER
     Dosage: 30 MINUTES BEFORE NIASPAN
  3. METFORMIN HCL [Concomitant]
     Indication: DIABETES MELLITUS
  4. NIASPAN [Suspect]
     Indication: CARDIAC DISORDER
     Dosage: AT NIGHT
     Dates: start: 20101001
  5. CRESTOR [Concomitant]
     Indication: BLOOD CHOLESTEROL INCREASED
  6. DIGOXIN [Concomitant]
     Indication: HEART RATE IRREGULAR
  7. ALTACE [Concomitant]
     Indication: CARDIAC DISORDER

REACTIONS (6)
  - MITRAL VALVE REPLACEMENT [None]
  - SKIN WARM [None]
  - PRURITUS [None]
  - STENT PLACEMENT [None]
  - FLUSHING [None]
  - ERYTHEMA [None]
